FAERS Safety Report 4277304-9 (Version None)
Quarter: 2004Q1

REPORT INFORMATION
  Report Type: 
  Country: None (occurrence: None)
  Receive Date: 20040120
  Receipt Date: 20040107
  Transmission Date: 20041129
  Serious: Yes (Other)
  Sender: FDA-Public Use
  Company Number: 2003124722

PATIENT
  Sex: Male

DRUGS (2)
  1. DIFLUCAN [Suspect]
     Indication: SYSTEMIC MYCOSIS
     Dosage: 200 MG (BID) INTRAVENOUS
     Route: 042
  2. VANCOMYCIN HCL [Concomitant]

REACTIONS (2)
  - BLOOD DISORDER [None]
  - WHITE BLOOD CELL COUNT DECREASED [None]
